FAERS Safety Report 5081327-X (Version None)
Quarter: 2006Q3

REPORT INFORMATION
  Report Type: 
  Country: None (occurrence: None)
  Receive Date: 20060814
  Receipt Date: 20060814
  Transmission Date: 20061208
  Serious: Yes (Hospitalization)
  Sender: FDA-Public Use
  Company Number: None

PATIENT
  Age: 82 Year
  Sex: Female

DRUGS (1)
  1. PHYTONADIONE [Suspect]

REACTIONS (7)
  - HYPERHIDROSIS [None]
  - HYPOTENSION [None]
  - HYPOTONIA [None]
  - LOSS OF CONSCIOUSNESS [None]
  - OXYGEN SATURATION DECREASED [None]
  - TACHYCARDIA [None]
  - UNEVALUABLE EVENT [None]
